FAERS Safety Report 12452173 (Version 1)
Quarter: 2016Q2

REPORT INFORMATION
  Report Type: Spontaneous
  Country: JP (occurrence: JP)
  Receive Date: 20160609
  Receipt Date: 20160609
  Transmission Date: 20160815
  Serious: Yes (Death)
  Sender: FDA-Public Use
  Company Number: PHJP1997JP003835

PATIENT
  Age: 58 Year
  Sex: Female
  Weight: 52 kg

DRUGS (8)
  1. SANDIMMUN [Suspect]
     Active Substance: CYCLOSPORINE
     Indication: HEPATIC FAILURE
     Dosage: 35 MG, UNK
     Route: 065
     Dates: start: 19950813, end: 19950813
  2. SOLU-MEDROL [Suspect]
     Active Substance: METHYLPREDNISOLONE SODIUM SUCCINATE
     Indication: HEPATIC FAILURE
     Dosage: 125 MG, UNK
     Route: 065
     Dates: start: 19950815, end: 19950815
  3. SOLU-MEDROL [Suspect]
     Active Substance: METHYLPREDNISOLONE SODIUM SUCCINATE
     Indication: HEPATIC FAILURE
     Dosage: 500 MG, UNK
     Route: 065
     Dates: start: 19950813, end: 19950813
  4. SOLU-MEDROL [Suspect]
     Active Substance: METHYLPREDNISOLONE SODIUM SUCCINATE
     Indication: HEPATIC FAILURE
     Dosage: 250 MG, UNK
     Route: 065
     Dates: start: 19950814, end: 19950814
  5. SANDIMMUN SIM+SOLINF [Suspect]
     Active Substance: CYCLOSPORINE
     Indication: HEPATIC FAILURE
     Dosage: 25 MG, UNK
     Route: 065
     Dates: start: 19950811, end: 19950812
  6. SOLU-MEDROL [Suspect]
     Active Substance: METHYLPREDNISOLONE SODIUM SUCCINATE
     Indication: HEPATIC FAILURE
     Dosage: 1 G, UNK
     Route: 065
     Dates: start: 19950810, end: 19950812
  7. SOLU-MEDROL [Suspect]
     Active Substance: METHYLPREDNISOLONE SODIUM SUCCINATE
     Indication: HEPATIC FAILURE
     Dosage: 100 MG, UNK
     Route: 065
     Dates: start: 19950816, end: 19950816
  8. FERON//INTERFERON BETA [Suspect]
     Active Substance: INTERFERON BETA
     Indication: HEPATIC FAILURE
     Dosage: 3 DF, UNK
     Route: 065
     Dates: start: 19950810, end: 19950812

REACTIONS (1)
  - Pneumonia [Fatal]

NARRATIVE: CASE EVENT DATE: 19950820
